FAERS Safety Report 7498995-5 (Version None)
Quarter: 2011Q2

REPORT INFORMATION
  Report Type: 
  Country: None (occurrence: None)
  Receive Date: 20110524
  Receipt Date: 20101220
  Transmission Date: 20111010
  Serious: Yes (Hospitalization)
  Sender: FDA-Public Use
  Company Number: US-BAYER-201025515NA

PATIENT
  Age: 21 Year
  Sex: Female
  Weight: 70.295 kg

DRUGS (2)
  1. NAPROXEN [Concomitant]
     Dosage: UNK
     Dates: start: 20000101
  2. YASMIN [Suspect]
     Indication: CONTRACEPTION
     Dosage: UNK
     Dates: start: 20010101, end: 20080517

REACTIONS (7)
  - PAIN [None]
  - DEEP VEIN THROMBOSIS POSTOPERATIVE [None]
  - EMOTIONAL DISTRESS [None]
  - ANXIETY [None]
  - PAIN IN EXTREMITY [None]
  - INJURY [None]
  - DISCOMFORT [None]
